FAERS Safety Report 16883584 (Version 2)
Quarter: 2021Q3

REPORT INFORMATION
  Report Type: Spontaneous
  Country: US (occurrence: US)
  Receive Date: 20191004
  Receipt Date: 20210705
  Transmission Date: 20211014
  Serious: Yes (Hospitalization, Other)
  Sender: FDA-Public Use
  Company Number: US-TEVA-2019-US-1117958

PATIENT
  Age: 80 Year
  Sex: Female

DRUGS (6)
  1. VALSARTAN /HYDROCHLOROTHIAZIDE?ACTAVIS [Suspect]
     Active Substance: HYDROCHLOROTHIAZIDE\VALSARTAN
     Indication: HYPERTENSION
     Dosage: 80?12.5 MG
     Route: 048
     Dates: start: 2015
  2. VALSARTAN /HYDROCHLOROTHIAZIDE?AUROBINDO [Suspect]
     Active Substance: HYDROCHLOROTHIAZIDE\VALSARTAN
     Dosage: 80?12.5 MG
     Route: 048
     Dates: start: 2018
  3. VALSARTAN /HYDROCHLOROTHIAZIDE?MYLAN [Suspect]
     Active Substance: HYDROCHLOROTHIAZIDE\VALSARTAN
     Indication: HYPERTENSION
     Dosage: 80?12.5 MG
     Route: 048
     Dates: start: 20160809
  4. VALSARTAN /HYDROCHLOROTHIAZIDE?LUPIN [Suspect]
     Active Substance: HYDROCHLOROTHIAZIDE\VALSARTAN
     Indication: HYPERTENSION
     Dosage: 80?12.5 MG
     Route: 048
     Dates: start: 20150205, end: 20160506
  5. VALSARTAN /HYDROCHLOROTHIAZIDE?AUROBINDO [Suspect]
     Active Substance: HYDROCHLOROTHIAZIDE\VALSARTAN
     Indication: HYPERTENSION
     Dosage: 80?12.5 MG
     Route: 048
     Dates: start: 20161107, end: 20170825
  6. VALSARTAN /HYDROCHLOROTHIAZIDE?ALEMBIC [Suspect]
     Active Substance: HYDROCHLOROTHIAZIDE\VALSARTAN
     Indication: HYPERTENSION
     Dosage: 80?12.5 MG
     Route: 048
     Dates: start: 2017

REACTIONS (8)
  - Mesenteric neoplasm [Unknown]
  - Fallopian tube cancer [Unknown]
  - Malignant neoplasm of uterine adnexa [Unknown]
  - Ovarian cancer [Unknown]
  - Ascites [Unknown]
  - Retroperitoneal cancer [Unknown]
  - Carcinoid tumour of the small bowel [Unknown]
  - Malignant peritoneal neoplasm [Unknown]
